FAERS Safety Report 4594834-0 (Version None)
Quarter: 2005Q1

REPORT INFORMATION
  Report Type: 
  Country: None (occurrence: None)
  Receive Date: 20050223
  Receipt Date: 20050210
  Transmission Date: 20050727
  Serious: Yes (Other)
  Sender: FDA-Public Use
  Company Number: HQWYE426019AUG04

PATIENT
  Age: 56 Year
  Sex: Female

DRUGS (6)
  1. EFFEXOR XR [Suspect]
     Indication: DEPRESSION
     Dosage: 75 MG, FREQUENCY UNKNOWN ORAL
     Route: 048
     Dates: start: 20031101
  2. EFFEXOR XR [Suspect]
     Dosage: 150 MG, FREQUENCY UNKNOWN ORAL
     Route: 048
     Dates: end: 20040701
  3. EFFEXOR XR [Suspect]
     Dosage: UNKNOWN DOSE, TRIED TO DISCONTINUE ORAL
     Route: 048
     Dates: start: 20040701, end: 20040101
  4. EFFEXOR XR [Suspect]
     Dosage: 75 MG, FREQUENCY UNKNOWN ORAL
     Route: 048
     Dates: start: 20040101, end: 20040101
  5. EFFEXOR XR [Suspect]
     Dosage: ^16 MG^, FREQUENCY UNKNOWN ORAL
     Route: 048
  6. EFFEXOR XR [Suspect]
     Dosage: 37.5 MG 1X PER 1 DAY ORAL
     Route: 048

REACTIONS (8)
  - ARRHYTHMIA [None]
  - DRUG WITHDRAWAL SYNDROME [None]
  - INSOMNIA [None]
  - OXYGEN SATURATION DECREASED [None]
  - PALPITATIONS [None]
  - PARAESTHESIA [None]
  - RESPIRATORY DISORDER [None]
  - SUICIDAL IDEATION [None]
